FAERS Safety Report 12684708 (Version 2)
Quarter: 2016Q3

REPORT INFORMATION
  Report Type: Spontaneous
  Country: US (occurrence: US)
  Receive Date: 20160825
  Receipt Date: 20160830
  Transmission Date: 20161109
  Serious: No
  Sender: FDA-Public Use
  Company Number: US-LUNDBECK-DKLU2017412

PATIENT
  Age: 85 Year
  Sex: Female

DRUGS (2)
  1. NORTHERA [Suspect]
     Active Substance: DROXIDOPA
     Indication: PRODUCT USED FOR UNKNOWN INDICATION
     Dosage: SCHEDULE C AND TITRATING
     Route: 065
     Dates: start: 20160729, end: 20160802
  2. NORTHERA [Suspect]
     Active Substance: DROXIDOPA
     Dates: start: 20160811

REACTIONS (4)
  - Feeling hot [Unknown]
  - Hyperhidrosis [Unknown]
  - Heart rate increased [Unknown]
  - Dyskinesia [Unknown]

NARRATIVE: CASE EVENT DATE: 20160729
